FAERS Safety Report 6288557-X (Version None)
Quarter: 2009Q3

REPORT INFORMATION
  Report Type: 
  Country: None (occurrence: None)
  Receive Date: 20090727
  Receipt Date: 20090720
  Transmission Date: 20100115
  Serious: Yes (Other)
  Sender: FDA-Public Use
  Company Number: ADR9042009 (MHRA ADR NO.: ADR 20098

PATIENT
  Age: 80 Year
  Sex: Male

DRUGS (5)
  1. RAMIPRIL [Suspect]
     Indication: HYPERTENSION
     Dosage: ORAL
     Route: 048
  2. ASPIRIN TAB [Concomitant]
  3. ACETAMINOPHEN WITH PROPOXYPHENE HCL TAB [Concomitant]
  4. DICLOFENAC [Concomitant]
  5. NITROLINGUAL [Concomitant]

REACTIONS (2)
  - CONDITION AGGRAVATED [None]
  - GOUT [None]
